FAERS Safety Report 9942803 (Version 1)
Quarter: 2014Q1

REPORT INFORMATION
  Report Type: Report from Study
  Country: US (occurrence: US)
  Receive Date: 20140303
  Receipt Date: 20140303
  Transmission Date: 20141002
  Serious: No
  Sender: FDA-Public Use
  Company Number: US-ABBVIE-13P-163-1044186-00

PATIENT
  Age: 63 Year
  Sex: Female

DRUGS (20)
  1. HUMIRA [Suspect]
     Indication: CROHN^S DISEASE
     Route: 058
     Dates: start: 20121211, end: 20121211
  2. HUMIRA [Suspect]
     Route: 058
     Dates: start: 20121214, end: 20121214
  3. HUMIRA [Suspect]
     Route: 058
     Dates: start: 20121216, end: 20121216
  4. HUMIRA [Suspect]
     Route: 058
     Dates: start: 20121217, end: 20121217
  5. B12 [Concomitant]
     Indication: VITAMIN B12 DEFICIENCY
     Dosage: MONTHLY
  6. ATENOLOL [Concomitant]
     Indication: HEART RATE IRREGULAR
     Dosage: 1 TAB DAILY
  7. ATENOLOL [Concomitant]
     Indication: ANXIETY
  8. ZOCOR [Concomitant]
     Indication: BLOOD CHOLESTEROL INCREASED
     Dosage: 1 TAB DAILY
  9. IMURAN [Concomitant]
     Indication: CROHN^S DISEASE
     Dosage: 1 TAB DAILY
  10. ZOFRAN [Concomitant]
     Indication: NAUSEA
  11. DEXILANT [Concomitant]
     Indication: GASTROOESOPHAGEAL REFLUX DISEASE
     Dosage: 1 TAB DAILY
  12. DEXILANT [Concomitant]
     Indication: HIATUS HERNIA
  13. ALIGN [Concomitant]
     Indication: PROBIOTIC THERAPY
     Dosage: 1 TAB DAILY
  14. VITAMIN D [Concomitant]
     Indication: VITAMIN D DEFICIENCY
  15. FERROUS SULFATE [Concomitant]
     Indication: ANAEMIA
     Dosage: 325 MG EVERY 3 DAYS
  16. ZOLOFT [Concomitant]
     Indication: ANXIETY
     Dosage: 1 TAB DAILY
  17. ZOLOFT [Concomitant]
     Indication: DEPRESSION
  18. TACLONEX [Concomitant]
     Indication: PSORIASIS
     Dosage: APPLY TO AFFECTED AREAS DAILY ALTERNATING WEEKS WITH REMEVEN
  19. REMEVEN [Concomitant]
     Indication: PSORIASIS
     Dosage: APPLY TO AFFECTED AREAS DAILY FOR 1 WEEK, ALTERNATING WEEKS WITH TACLONEX
  20. PREMARIN [Concomitant]
     Indication: PREOPERATIVE HORMONE TREATMENT
     Route: 067

REACTIONS (5)
  - Drug administration error [Not Recovered/Not Resolved]
  - Injection site pain [Unknown]
  - Urinary tract infection [Recovered/Resolved]
  - Anal abscess [Recovered/Resolved]
  - Urinary tract infection [Not Recovered/Not Resolved]
